FAERS Safety Report 18778455 (Version 1)
Quarter: 2021Q1

REPORT INFORMATION
  Report Type: Report from Study
  Country: US (occurrence: US)
  Receive Date: 20210123
  Receipt Date: 20210123
  Transmission Date: 20210419
  Serious: Yes (Death, Other)
  Sender: FDA-Public Use
  Company Number: US-ADVANZ PHARMA-202012011415

PATIENT

DRUGS (5)
  1. AMPHETAMINE, DEXTROAMPHETAMINE [Suspect]
     Active Substance: AMPHETAMINE\DEXTROAMPHETAMINE
     Dosage: INGESTION UNKNOWN
     Route: 048
  2. ALCOHOL. [Suspect]
     Active Substance: ALCOHOL
     Dosage: INGESTION UNKNOWN
     Route: 048
  3. CLONIDINE. [Suspect]
     Active Substance: CLONIDINE
     Dosage: UNK INGESTION UNKNOWN
     Route: 048
  4. NAPROXEN. [Suspect]
     Active Substance: NAPROXEN
     Dosage: INGESTION UNKNOWN
     Route: 048
  5. PHENTERMINE. [Suspect]
     Active Substance: PHENTERMINE
     Dosage: INGESTION UNKNOWN
     Route: 048

REACTIONS (1)
  - Completed suicide [Fatal]
